FAERS Safety Report 8081183-1 (Version None)
Quarter: 2012Q1

REPORT INFORMATION
  Report Type: 
  Country: None (occurrence: None)
  Receive Date: 20120130
  Receipt Date: 20120119
  Transmission Date: 20120608
  Serious: Yes (Hospitalization, Disabling)
  Sender: FDA-Public Use
  Company Number: JP-GLAXOSMITHKLINE-B0776753A

PATIENT
  Age: 74 Year
  Sex: Male

DRUGS (2)
  1. PROMACTA [Suspect]
     Indication: THROMBOCYTOPENIA
     Dosage: 12.5MG PER DAY
     Route: 048
     Dates: start: 20111216, end: 20120118
  2. LOXONIN [Concomitant]
     Route: 061
     Dates: end: 20120118

REACTIONS (3)
  - MONOPLEGIA [None]
  - NEUROLOGIC NEGLECT SYNDROME [None]
  - CEREBRAL INFARCTION [None]
